FAERS Safety Report 6011917-9 (Version None)
Quarter: 2008Q4

REPORT INFORMATION
  Report Type: 
  Country: None (occurrence: None)
  Receive Date: 20081218
  Receipt Date: 20081002
  Transmission Date: 20090506
  Serious: Yes (Other)
  Sender: FDA-Public Use
  Company Number: US-ASTRAZENECA-2008UW21518

PATIENT
  Age: 60 Year
  Sex: Female
  Weight: 102.1 kg

DRUGS (7)
  1. CRESTOR [Suspect]
     Indication: BLOOD CHOLESTEROL INCREASED
     Dosage: 10MG
     Route: 048
  2. CARISOPRODOL [Concomitant]
  3. SINGULAIR [Concomitant]
  4. ZETIA [Concomitant]
  5. LEXAPRO [Concomitant]
  6. QUINAPRIL [Concomitant]
  7. QUININE [Concomitant]

REACTIONS (5)
  - AMYLOIDOSIS [None]
  - ASTHENIA [None]
  - HOT FLUSH [None]
  - SKIN ATROPHY [None]
  - THROMBOSIS [None]
